FAERS Safety Report 18499039 (Version 2)
Quarter: 2020Q4

REPORT INFORMATION
  Report Type: Spontaneous
  Country: US (occurrence: US)
  Receive Date: 20201112
  Receipt Date: 20201124
  Transmission Date: 20210114
  Serious: Yes (Other)
  Sender: FDA-Public Use
  Company Number: US-TAKEDA-2020TUS047300

PATIENT
  Sex: Female
  Weight: 99.77 kg

DRUGS (26)
  1. METFORMIN [Concomitant]
     Active Substance: METFORMIN HYDROCHLORIDE
  2. TRIAMTERENE HCTZ [Concomitant]
     Active Substance: HYDROCHLOROTHIAZIDE\TRIAMTERENE
  3. MELOXICAM. [Concomitant]
     Active Substance: MELOXICAM
  4. LASIX [Concomitant]
     Active Substance: FUROSEMIDE
  5. CUVITRU [Suspect]
     Active Substance: HUMAN IMMUNOGLOBULIN G
     Indication: IMMUNODEFICIENCY COMMON VARIABLE
     Dosage: 20 GRAM, 1/WEEK
     Route: 058
     Dates: start: 20170901
  6. AZELASTINE. [Concomitant]
     Active Substance: AZELASTINE HYDROCHLORIDE
  7. EPINEPHRINE. [Concomitant]
     Active Substance: EPINEPHRINE
  8. LYRICA [Concomitant]
     Active Substance: PREGABALIN
  9. ALLEGRA [Concomitant]
     Active Substance: FEXOFENADINE HYDROCHLORIDE
  10. CEFDINIR. [Concomitant]
     Active Substance: CEFDINIR
  11. LIPITOR [Concomitant]
     Active Substance: ATORVASTATIN CALCIUM
  12. LOSARTAN POTASSIUM. [Concomitant]
     Active Substance: LOSARTAN POTASSIUM
  13. DULOXETINE. [Concomitant]
     Active Substance: DULOXETINE
  14. PROAIR HFA [Concomitant]
     Active Substance: ALBUTEROL SULFATE
  15. HAIR, SKIN AND NAILS [Concomitant]
  16. ACETAMINOPHEN. [Concomitant]
     Active Substance: ACETAMINOPHEN
  17. DIPHENHYDRAMINE. [Concomitant]
     Active Substance: DIPHENHYDRAMINE
  18. VITAMIN D3 [Concomitant]
     Active Substance: CHOLECALCIFEROL
  19. VITAMIN C [Concomitant]
     Active Substance: ASCORBIC ACID
  20. LUTEIN;VITAMINS NOS [Concomitant]
  21. PREMARIN [Concomitant]
     Active Substance: ESTROGENS, CONJUGATED
  22. TRAMADOL. [Concomitant]
     Active Substance: TRAMADOL
  23. FERROUS SULFATE. [Concomitant]
     Active Substance: FERROUS SULFATE
  24. GLUCOSE [Concomitant]
     Active Substance: DEXTROSE
  25. AMOXICILLIN. [Concomitant]
     Active Substance: AMOXICILLIN
  26. CYCLOBENZAPRINE. [Concomitant]
     Active Substance: CYCLOBENZAPRINE

REACTIONS (4)
  - Fatigue [Unknown]
  - Infection [Unknown]
  - Stress [Unknown]
  - Respiratory tract infection [Unknown]
